FAERS Safety Report 5386430-2 (Version None)
Quarter: 2007Q3

REPORT INFORMATION
  Report Type: 
  Country: None (occurrence: None)
  Receive Date: 20070713
  Receipt Date: 20070702
  Transmission Date: 20080115
  Serious: Yes (Death)
  Sender: FDA-Public Use
  Company Number: US-JNJFOC-20070700844

PATIENT
  Sex: Male

DRUGS (3)
  1. DURAGESIC-100 [Suspect]
     Indication: DRUG USE FOR UNKNOWN INDICATION
     Route: 062
  2. ROXICET [Concomitant]
     Route: 065
  3. UNSPECIFIED ANTIBIOTIC [Concomitant]
     Route: 065

REACTIONS (2)
  - DRUG PRESCRIBING ERROR [None]
  - NARCOTIC INTOXICATION [None]
